FAERS Safety Report 9640161 (Version 1)
Quarter: 2013Q4

REPORT INFORMATION
  Report Type: Spontaneous
  Country: US (occurrence: None)
  Receive Date: 20131022
  Receipt Date: 20131022
  Transmission Date: 20140711
  Serious: Yes (Death, Life-Threatening, Disabling, Congenital Anomaly, Other)
  Sender: FDA-Public Use
  Company Number: None

PATIENT
  Age: 35 Year
  Sex: Female
  Weight: 68.04 kg

DRUGS (1)
  1. BACTRIM DS [Suspect]
     Indication: CYSTITIS
     Dosage: 1 PILL . TAKEN BY MOUTH
     Route: 048
     Dates: start: 20130830, end: 20130906

REACTIONS (8)
  - Diarrhoea [None]
  - Neck mass [None]
  - Pyrexia [None]
  - Back pain [None]
  - Fatigue [None]
  - Rash [None]
  - Foetal heart rate abnormal [None]
  - Exposure during pregnancy [None]
